FAERS Safety Report 8065483-7 (Version None)
Quarter: 2012Q1

REPORT INFORMATION
  Report Type: 
  Country: None (occurrence: None)
  Receive Date: 20120124
  Receipt Date: 20120123
  Transmission Date: 20120608
  Serious: Yes (Death, Other)
  Sender: FDA-Public Use
  Company Number: NL-AMGEN-NLDSP2011064585

PATIENT
  Age: 84 Year
  Sex: Male
  Weight: 60 kg

DRUGS (2)
  1. VECTIBIX [Suspect]
     Indication: COLORECTAL CANCER METASTATIC
     Dosage: 360 MG, Q3WK
     Route: 042
     Dates: start: 20110518, end: 20111116
  2. LOPERAMIDE [Concomitant]
     Indication: DIARRHOEA
     Dosage: 2 MG, PRN
     Route: 048
     Dates: start: 20110110, end: 20111203

REACTIONS (4)
  - DEATH [None]
  - NEOPLASM MALIGNANT [None]
  - DIARRHOEA [None]
  - FREQUENT BOWEL MOVEMENTS [None]
